FAERS Safety Report 9886111 (Version 3)
Quarter: 2014Q1

REPORT INFORMATION
  Report Type: Spontaneous
  Country: US (occurrence: US)
  Receive Date: 20140210
  Receipt Date: 20140311
  Transmission Date: 20141002
  Serious: Yes (Hospitalization)
  Sender: FDA-Public Use
  Company Number: US-TMC-CABO-14003950

PATIENT
  Age: 72 Year
  Sex: Male

DRUGS (11)
  1. COMETRIQ [Suspect]
     Indication: THYROID CANCER
     Dosage: 140 MG, QD
     Route: 048
     Dates: start: 20140117, end: 20140120
  2. CLARITIN [Concomitant]
  3. OXYCODONE [Concomitant]
  4. RITALIN [Concomitant]
  5. PROCHLORPERAZINE [Concomitant]
  6. FENTANYL [Concomitant]
  7. LEVOTHYROXINE [Concomitant]
  8. OMEPRAZOLE [Concomitant]
  9. PRAVASTATIN [Concomitant]
  10. ATENOLOL [Concomitant]
  11. LOPERAMIDE [Concomitant]

REACTIONS (14)
  - Confusional state [Recovered/Resolved]
  - Fall [Unknown]
  - Ocular icterus [Recovering/Resolving]
  - Chills [Unknown]
  - Eating disorder [Unknown]
  - Diarrhoea [Recovering/Resolving]
  - Stomatitis [Not Recovered/Not Resolved]
  - Asthenia [Unknown]
  - Fatigue [Unknown]
  - Decreased appetite [Unknown]
  - Dysgeusia [Unknown]
  - Rash [Recovering/Resolving]
  - Dizziness [Unknown]
  - Weight decreased [Unknown]
